FAERS Safety Report 16382728 (Version 4)
Quarter: 2019Q4

REPORT INFORMATION
  Report Type: Report from Study
  Country: US (occurrence: US)
  Receive Date: 20190603
  Receipt Date: 20191112
  Transmission Date: 20200122
  Serious: No
  Sender: FDA-Public Use
  Company Number: PHEH2019US023449

PATIENT
  Age: 52 Year
  Sex: Female

DRUGS (1)
  1. COSENTYX [Suspect]
     Active Substance: SECUKINUMAB
     Indication: ANKYLOSING SPONDYLITIS
     Route: 065

REACTIONS (10)
  - Spinal pain [Unknown]
  - Sinus disorder [Unknown]
  - Headache [Unknown]
  - Feeling abnormal [Unknown]
  - Anosmia [Unknown]
  - Concomitant disease aggravated [Unknown]
  - Oropharyngeal pain [Unknown]
  - Crepitations [Unknown]
  - Ageusia [Unknown]
  - Malaise [Unknown]
